FAERS Safety Report 6079713-4 (Version None)
Quarter: 2009Q1

REPORT INFORMATION
  Report Type: 
  Country: None (occurrence: None)
  Receive Date: 20090211
  Receipt Date: 20090127
  Transmission Date: 20090719
  Serious: Yes (Life-Threatening, Hospitalization)
  Sender: FDA-Public Use
  Company Number: GP-09-01-0015

PATIENT
  Age: 65 Year
  Sex: Female

DRUGS (2)
  1. SIMVASTATIN [Suspect]
     Indication: HYPERCHOLESTEROLAEMIA
     Dosage: 40 MG DAILY
  2. FLUCONAZOLE [Suspect]
     Indication: CANDIDIASIS
     Dosage: 800 MG DAILY

REACTIONS (1)
  - RHABDOMYOLYSIS [None]
